FAERS Safety Report 13907366 (Version 1)
Quarter: 2017Q3

REPORT INFORMATION
  Report Type: Spontaneous
  Country: US (occurrence: US)
  Receive Date: 20170825
  Receipt Date: 20170825
  Transmission Date: 20171127
  Serious: No
  Sender: FDA-Public Use
  Company Number: US-ROCHE-1051662

PATIENT

DRUGS (2)
  1. SOMATROPIN. [Suspect]
     Active Substance: SOMATROPIN
     Indication: PRODUCT USED FOR UNKNOWN INDICATION
     Dosage: DRUG NAME GIVEN AS NUTROPIN AQ 10 PENDEVICE
     Route: 058
     Dates: end: 20120321
  2. SOMATROPIN. [Suspect]
     Active Substance: SOMATROPIN
     Dosage: DRUG PROVIDED AS NUTROPIN AQ 10 NUSPIN PEN DEVICE
     Route: 058
     Dates: start: 20120321

REACTIONS (1)
  - Burning sensation [Unknown]

NARRATIVE: CASE EVENT DATE: 20120322
